FAERS Safety Report 6797938-7 (Version None)
Quarter: 2010Q2

REPORT INFORMATION
  Report Type: 
  Country: None (occurrence: None)
  Receive Date: 20100623
  Receipt Date: 20091013
  Transmission Date: 20101027
  Serious: Yes (Disabling)
  Sender: FDA-Public Use
  Company Number: APP200900570

PATIENT
  Age: 27 Year
  Sex: Male

DRUGS (4)
  1. SENSORCAINE [Suspect]
     Indication: MUSCULOSKELETAL PAIN
     Dosage: CONTINUOUS VIA PUMP, INTRA-ARTICULAR
     Route: 014
     Dates: start: 20041230
  2. BUPIVACAINE HYDROCHLORIDE AND EPINEPHRINE [Suspect]
     Indication: DRUG USE FOR UNKNOWN INDICATION
     Dosage: 20 ML, LOCAL INFILTRATION
     Dates: start: 20011230
  3. I-FLOW ON-Q PAIN PUMP [Suspect]
     Indication: MUSCULOSKELETAL PAIN
     Dates: start: 20041230
  4. ANCEF [Concomitant]

REACTIONS (7)
  - ACTIVITIES OF DAILY LIVING IMPAIRED [None]
  - ADHESION [None]
  - CHONDROLYSIS [None]
  - CHONDROMALACIA [None]
  - JOINT INJURY [None]
  - MUSCULOSKELETAL PAIN [None]
  - SYNOVITIS [None]
